FAERS Safety Report 4406878-X (Version None)
Quarter: 2004Q3

REPORT INFORMATION
  Report Type: 
  Country: None (occurrence: None)
  Receive Date: 20040715
  Receipt Date: 20040706
  Transmission Date: 20050211
  Serious: Yes (Life-Threatening, Hospitalization, Disabling)
  Sender: FDA-Public Use
  Company Number: 2004RL000019

PATIENT
  Age: 38 Year
  Sex: Male

DRUGS (2)
  1. RYTHMOL [Suspect]
     Indication: ATRIAL FIBRILLATION
     Dosage: 300 MG; BID; PO
     Route: 048
     Dates: start: 20030630, end: 20040324
  2. FLUINDIONE [Concomitant]

REACTIONS (8)
  - ATRIAL FIBRILLATION [None]
  - CARDIAC ARREST [None]
  - CEREBRAL DISORDER [None]
  - ILL-DEFINED DISORDER [None]
  - MALAISE [None]
  - NERVOUS SYSTEM DISORDER [None]
  - PALPITATIONS [None]
  - SYNCOPE [None]
